FAERS Safety Report 24066744 (Version 1)
Quarter: 2024Q3

REPORT INFORMATION
  Report Type: Spontaneous
  Country: US (occurrence: None)
  Receive Date: 20240709
  Receipt Date: 20240709
  Transmission Date: 20241016
  Serious: Yes (Hospitalization)
  Sender: Public
  Company Number: None

PATIENT
  Sex: Female

DRUGS (1)
  1. XOLAIR [Suspect]
     Active Substance: OMALIZUMAB
     Dosage: OTHER QUANTITY : INJECT 2 SYRINGES;?FREQUENCY : MONTHLY;?
     Route: 058

REACTIONS (1)
  - Hospitalisation [None]
